FAERS Safety Report 9438647 (Version 1)
Quarter: 2013Q3

REPORT INFORMATION
  Report Type: Spontaneous
  Country: US (occurrence: US)
  Receive Date: 20130802
  Receipt Date: 20130802
  Transmission Date: 20140515
  Serious: Yes (Other)
  Sender: FDA-Public Use
  Company Number: US-PFIZER INC-2013223211

PATIENT
  Age: 53 Year
  Sex: Female

DRUGS (3)
  1. CELEBREX [Suspect]
     Dosage: UNK
     Dates: start: 20110309
  2. ERYTHROMYCIN [Suspect]
     Dosage: UNK
     Route: 048
     Dates: start: 20110309
  3. TOPAMAX [Suspect]
     Dosage: UNK
     Route: 048
     Dates: start: 20110309

REACTIONS (3)
  - Suicidal ideation [Recovered/Resolved]
  - Myalgia [Recovered/Resolved]
  - Drug hypersensitivity [Unknown]
